FAERS Safety Report 16815801 (Version 5)
Quarter: 2021Q1

REPORT INFORMATION
  Report Type: Other
  Country: US (occurrence: US)
  Receive Date: 20190917
  Receipt Date: 20210120
  Transmission Date: 20210419
  Serious: No
  Sender: FDA-Public Use
  Company Number: US-ROCHE-2407344

PATIENT
  Age: 31 Year
  Sex: Female
  Weight: 59.02 kg

DRUGS (2)
  1. OCREVUS [Suspect]
     Active Substance: OCRELIZUMAB
     Indication: MULTIPLE SCLEROSIS
     Dosage: 2 HALF DOSES SEPARATED TWO WEEKS APART; ONGOING: NO
     Route: 042
     Dates: start: 201809
  2. OCREVUS [Suspect]
     Active Substance: OCRELIZUMAB
     Dosage: ON 14/MAR/2019 AND 19/SEP/2019, SHE RECEIVED THERAPY WITH OCRELIZUMAB INFUSION. ONGOING: YES
     Route: 042
     Dates: start: 201809

REACTIONS (2)
  - Herpes zoster [Recovered/Resolved]
  - COVID-19 [Not Recovered/Not Resolved]

NARRATIVE: CASE EVENT DATE: 20190314
